FAERS Safety Report 19749281 (Version 1)
Quarter: 2021Q3

REPORT INFORMATION
  Report Type: Spontaneous
  Country: US (occurrence: US)
  Receive Date: 20210826
  Receipt Date: 20210826
  Transmission Date: 20211014
  Serious: No
  Sender: FDA-Public Use
  Company Number: US-BAYER-2021-199807

PATIENT
  Age: 20 Year
  Sex: Female

DRUGS (1)
  1. MIRENA [Suspect]
     Active Substance: LEVONORGESTREL
     Indication: DYSMENORRHOEA
     Dosage: 20 ?G, CONT
     Route: 015
     Dates: start: 202011

REACTIONS (3)
  - Acne cystic [Not Recovered/Not Resolved]
  - Quality of life decreased [None]
  - Acne [Not Recovered/Not Resolved]

NARRATIVE: CASE EVENT DATE: 202101
